FAERS Safety Report 9046300 (Version 2)
Quarter: 2013Q4

REPORT INFORMATION
  Report Type: Spontaneous
  Country: US (occurrence: US)
  Receive Date: 20130201
  Receipt Date: 20131231
  Transmission Date: 20140711
  Serious: Yes (Hospitalization, Other)
  Sender: FDA-Public Use
  Company Number: US-JNJFOC-20130111679

PATIENT
  Sex: Female
  Weight: 61.69 kg

DRUGS (2)
  1. HALDOL [Suspect]
     Indication: BIPOLAR DISORDER
     Route: 030
     Dates: start: 1978
  2. UNSPECIFIED HALDOL [Suspect]
     Indication: BIPOLAR DISORDER
     Route: 048
     Dates: start: 1978, end: 2010

REACTIONS (5)
  - Paralysis [Recovered/Resolved]
  - Tetanus [Recovered/Resolved]
  - Eye movement disorder [Recovered/Resolved]
  - Tooth fracture [Recovered/Resolved]
  - Multiple allergies [Recovered/Resolved]
